FAERS Safety Report 18545057 (Version 2)
Quarter: 2020Q4

REPORT INFORMATION
  Report Type: Report from Study
  Country: AU (occurrence: AU)
  Receive Date: 20201125
  Receipt Date: 20201201
  Transmission Date: 20210114
  Serious: Yes (Other)
  Sender: FDA-Public Use
  Company Number: AU-TAKEDA-AU202032177

PATIENT
  Sex: Male

DRUGS (2)
  1. AGALSIDASE ALFA [Suspect]
     Active Substance: AGALSIDASE ALFA
     Indication: FABRY^S DISEASE
     Dosage: UNK UNK, 1X/2WKS (FORTNIGHTLY)
     Route: 042
  2. 489 (LISDEXAMFETAMINE DIMESYLATE) [Suspect]
     Active Substance: LISDEXAMFETAMINE DIMESYLATE
     Indication: PRODUCT USED FOR UNKNOWN INDICATION
     Dosage: 70 MILLIGRAM
     Route: 065

REACTIONS (7)
  - Aphonia [Recovering/Resolving]
  - Product availability issue [Unknown]
  - Oropharyngeal pain [Unknown]
  - Cough [Unknown]
  - Dysphagia [Not Recovered/Not Resolved]
  - Skin cancer [Unknown]
  - Thermal burn [Recovering/Resolving]
